FAERS Safety Report 4352606-6 (Version None)
Quarter: 2004Q2

REPORT INFORMATION
  Report Type: 
  Country: None (occurrence: None)
  Receive Date: 20040503
  Receipt Date: 20040503
  Transmission Date: 20050107
  Serious: Yes (Other)
  Sender: FDA-Public Use
  Company Number: None

PATIENT
  Age: 36 Year
  Sex: Female
  Weight: 72.1219 kg

DRUGS (1)
  1. SULFAMETHOXAZOLE + TRIMETHOPRIM [Suspect]
     Indication: BRONCHITIS
     Dosage: 1 TABLET TWICE DAILY ORAL
     Route: 048
     Dates: start: 20040426, end: 20040429

REACTIONS (9)
  - ANOREXIA [None]
  - CHEST PAIN [None]
  - FATIGUE [None]
  - FEELING HOT [None]
  - NERVOUSNESS [None]
  - PALPITATIONS [None]
  - PANIC ATTACK [None]
  - PARAESTHESIA [None]
  - WEIGHT DECREASED [None]
